FAERS Safety Report 17229645 (Version 1)
Quarter: 2020Q1

REPORT INFORMATION
  Report Type: Spontaneous
  Country: CN (occurrence: CN)
  Receive Date: 20200103
  Receipt Date: 20200103
  Transmission Date: 20200409
  Serious: Yes (Life-Threatening, Other)
  Sender: FDA-Public Use
  Company Number: CN-BAYER-2019-236861

PATIENT
  Age: 68 Year
  Sex: Female
  Weight: 55 kg

DRUGS (3)
  1. AVELOX [Suspect]
     Active Substance: MOXIFLOXACIN HYDROCHLORIDE
     Indication: SEPSIS
  2. AVELOX [Suspect]
     Active Substance: MOXIFLOXACIN HYDROCHLORIDE
     Indication: ANTI-INFECTIVE THERAPY
     Dosage: 0.4 G, QD
     Route: 041
     Dates: start: 20191020, end: 20191020
  3. IMIPENEM AND CILASTATIN [Concomitant]
     Active Substance: CILASTATIN SODIUM\IMIPENEM

REACTIONS (9)
  - Product use in unapproved indication [None]
  - Abdominal discomfort [None]
  - Unresponsive to stimuli [None]
  - Trismus [None]
  - Off label use [None]
  - Nausea [None]
  - Chest discomfort [None]
  - Asthenia [None]
  - Loss of consciousness [Recovering/Resolving]

NARRATIVE: CASE EVENT DATE: 20191020
